FAERS Safety Report 6644955-3 (Version None)
Quarter: 2010Q1

REPORT INFORMATION
  Report Type: 
  Country: None (occurrence: None)
  Receive Date: 20100322
  Receipt Date: 20100310
  Transmission Date: 20100710
  Serious: Yes (Hospitalization, Other)
  Sender: FDA-Public Use
  Company Number: PHHY2010HU11508

PATIENT
  Age: 40 Year
  Sex: Female

DRUGS (4)
  1. CLOZAPINE [Suspect]
     Indication: SCHIZOPHRENIA
     Dosage: UNK
     Route: 048
  2. FLUPENTIXOL [Concomitant]
     Indication: SCHIZOPHRENIA
  3. CLONAZEPAM [Concomitant]
     Dosage: UNK
  4. RISPERIDONE [Concomitant]

REACTIONS (9)
  - DISTURBANCE IN ATTENTION [None]
  - ELEVATED MOOD [None]
  - FATIGUE [None]
  - HALLUCINATION, AUDITORY [None]
  - MENTAL DISABILITY [None]
  - MOOD SWINGS [None]
  - SOMNOLENCE [None]
  - TREATMENT NONCOMPLIANCE [None]
  - WEIGHT INCREASED [None]
